FAERS Safety Report 4839347-3 (Version None)
Quarter: 2005Q4

REPORT INFORMATION
  Report Type: 
  Country: None (occurrence: None)
  Receive Date: 20051129
  Receipt Date: 20050121
  Transmission Date: 20060501
  Serious: No
  Sender: FDA-Public Use
  Company Number: US-GLAXOSMITHKLINE-A0541757A

PATIENT
  Age: 37 Year
  Sex: Female

DRUGS (4)
  1. WELLBUTRIN SR [Suspect]
     Indication: DEPRESSION
     Dosage: 150MG TWICE PER DAY
     Route: 048
  2. LORATADINE [Concomitant]
  3. FLONASE [Concomitant]
  4. IBUPROFEN [Concomitant]

REACTIONS (6)
  - MUSCLE SPASMS [None]
  - NAUSEA [None]
  - PAIN [None]
  - PHARMACEUTICAL PRODUCT COMPLAINT [None]
  - SEDATION [None]
  - SOMNOLENCE [None]
